FAERS Safety Report 16846141 (Version 1)
Quarter: 2019Q3

REPORT INFORMATION
  Report Type: Spontaneous
  Country: US (occurrence: US)
  Receive Date: 20190924
  Receipt Date: 20190924
  Transmission Date: 20191005
  Serious: No
  Sender: FDA-Public Use
  Company Number: US-TEVA-2019-US-1112021

PATIENT
  Age: 43 Year
  Sex: Female

DRUGS (1)
  1. PROPOFOL 10MG/ML 20ML SDV ACTAVIS [Suspect]
     Active Substance: PROPOFOL
     Dosage: 10MG/ML 20ML SDV
     Route: 042

REACTIONS (3)
  - Blood pressure decreased [Unknown]
  - Body temperature increased [Unknown]
  - Tachycardia [Unknown]

NARRATIVE: CASE EVENT DATE: 20190913
